FAERS Safety Report 4722973-X (Version None)
Quarter: 2005Q3

REPORT INFORMATION
  Report Type: 
  Country: None (occurrence: None)
  Receive Date: 20050722
  Receipt Date: 20050707
  Transmission Date: 20060218
  Serious: Yes (Hospitalization)
  Sender: FDA-Public Use
  Company Number: JP-MERCK-0507USA01932

PATIENT
  Age: 78 Year
  Sex: Female

DRUGS (6)
  1. PEPCID [Suspect]
     Indication: GASTRIC ULCER
     Route: 048
     Dates: start: 20050620, end: 20050706
  2. DISOPYRAMIDE [Suspect]
     Route: 048
     Dates: start: 19990101
  3. LANIRAPID [Concomitant]
     Route: 048
     Dates: start: 19990101
  4. MEVALOTIN [Concomitant]
     Route: 048
     Dates: start: 19990101
  5. BUFFERIN [Concomitant]
     Route: 048
     Dates: start: 19990101
  6. MUCOSTA [Concomitant]
     Route: 048
     Dates: start: 20050620, end: 20050706

REACTIONS (2)
  - CARDIAC FAILURE [None]
  - HYPOGLYCAEMIA [None]
